FAERS Safety Report 7438212-5 (Version None)
Quarter: 2011Q2

REPORT INFORMATION
  Report Type: 
  Country: None (occurrence: None)
  Receive Date: 20110426
  Receipt Date: 20110112
  Transmission Date: 20111010
  Serious: Yes (Hospitalization, Other)
  Sender: FDA-Public Use
  Company Number: US-BAYER-201037540NA

PATIENT
  Sex: Female
  Weight: 54.422 kg

DRUGS (12)
  1. LEVOTHROID [Concomitant]
  2. OCELLA [Suspect]
     Indication: PRODUCT USED FOR UNKNOWN INDICATION
     Route: 048
     Dates: start: 20031023
  3. SPIRONOLACTONE [Concomitant]
     Dosage: UNK
     Dates: start: 20060101
  4. KLOR-CON [Concomitant]
     Indication: MINERAL SUPPLEMENTATION
     Dosage: 20 MEQ, QD
     Route: 048
  5. YASMIN [Suspect]
     Indication: MENSTRUATION IRREGULAR
     Route: 048
     Dates: start: 20031023
  6. ULTRASE MT20 [Concomitant]
     Indication: PANCREATITIS
     Dosage: UNK
     Route: 048
  7. DILAUDID [Concomitant]
     Indication: PAIN
     Dosage: UNK UNK, PRN
     Route: 048
  8. YASMIN [Suspect]
     Dosage: UNK
     Dates: start: 20040415, end: 20080218
  9. COPAXONE [Concomitant]
     Indication: MULTIPLE SCLEROSIS
     Dosage: UNK UNK, QD
     Route: 058
  10. VITAMINS [Concomitant]
  11. YAZ [Suspect]
     Indication: PRODUCT USED FOR UNKNOWN INDICATION
     Route: 048
     Dates: start: 20031023
  12. VALTREX [Concomitant]
     Dosage: 500 MG, UNK

REACTIONS (6)
  - CHOLECYSTITIS CHRONIC [None]
  - BILIARY DYSKINESIA [None]
  - GALLBLADDER INJURY [None]
  - FEAR [None]
  - EMOTIONAL DISTRESS [None]
  - PAIN [None]
